FAERS Safety Report 16978537 (Version 1)
Quarter: 2019Q4

REPORT INFORMATION
  Report Type: Spontaneous
  Country: US (occurrence: US)
  Receive Date: 20190916
  Receipt Date: 20190916
  Transmission Date: 20200122
  Serious: Yes (Hospitalization)
  Sender: FDA-Public Use
  Company Number: None

PATIENT
  Age: 66 Year
  Sex: Male
  Weight: 108 kg

DRUGS (16)
  1. ALBUTEROL. [Concomitant]
     Active Substance: ALBUTEROL
  2. ALTEPLASE. [Concomitant]
     Active Substance: ALTEPLASE
  3. GUAIFENESIN. [Concomitant]
     Active Substance: GUAIFENESIN
  4. IPRATROPIUM-ALBUTEROL [Concomitant]
     Active Substance: ALBUTEROL\IPRATROPIUM
  5. MELATONIN [Concomitant]
     Active Substance: MELATONIN
  6. NIVOLUMAB [Suspect]
     Active Substance: NIVOLUMAB
     Indication: OESOPHAGEAL CARCINOMA
     Route: 042
     Dates: start: 20190509
  7. DEXTROSE. [Concomitant]
     Active Substance: DEXTROSE
  8. RELATLIMAB [Suspect]
     Active Substance: RELATLIMAB
     Route: 042
     Dates: start: 20190703
  9. IODIXANOL. [Concomitant]
     Active Substance: IODIXANOL
  10. ONDANSETRON [Concomitant]
     Active Substance: ONDANSETRON
  11. FENTANYL. [Concomitant]
     Active Substance: FENTANYL
  12. DEXTROSE 5% IN WATER [Concomitant]
  13. GLUCAGON. [Concomitant]
     Active Substance: GLUCAGON
  14. OXYCODONE [Concomitant]
     Active Substance: OXYCODONE
  15. POTASSIUM CHLORIDE. [Concomitant]
     Active Substance: POTASSIUM CHLORIDE
  16. POTASSIUM CHLORIDE IN WATER [Concomitant]

REACTIONS (6)
  - Pericardial effusion [None]
  - Tachypnoea [None]
  - Central venous pressure increased [None]
  - Hypoxia [None]
  - Respiratory alkalosis [None]
  - Hypotension [None]

NARRATIVE: CASE EVENT DATE: 20190909
